FAERS Safety Report 7421994-6 (Version None)
Quarter: 2011Q2

REPORT INFORMATION
  Report Type: 
  Country: None (occurrence: None)
  Receive Date: 20110418
  Receipt Date: 20110405
  Transmission Date: 20111010
  Serious: Yes (Hospitalization)
  Sender: FDA-Public Use
  Company Number: US-ELI_LILLY_AND_COMPANY-US200910005622

PATIENT
  Sex: Female
  Weight: 60.771 kg

DRUGS (3)
  1. HYDROCODONE [Concomitant]
     Indication: BACK PAIN
     Dosage: UNK, UNKNOWN
  2. FORTEO [Suspect]
     Indication: OSTEOPOROSIS
     Dosage: 20 UG, DAILY (1/D)
     Route: 065
     Dates: start: 20091010, end: 20091016
  3. DOXEPIN [Concomitant]
     Indication: DEPRESSION
     Dosage: UNK, UNKNOWN

REACTIONS (12)
  - PAIN IN EXTREMITY [None]
  - HYPERTENSION [None]
  - BLOOD PRESSURE INCREASED [None]
  - MALAISE [None]
  - ASTHENIA [None]
  - PAIN [None]
  - EXTRASYSTOLES [None]
  - PALPITATIONS [None]
  - HYPOAESTHESIA [None]
  - ABDOMINAL PAIN UPPER [None]
  - FEELING ABNORMAL [None]
  - DEPRESSED MOOD [None]
